FAERS Safety Report 23664200 (Version 8)
Quarter: 2025Q1

REPORT INFORMATION
  Report Type: Report from Study
  Country: US (occurrence: US)
  Receive Date: 20240322
  Receipt Date: 20250312
  Transmission Date: 20250409
  Serious: Yes (Hospitalization, Other)
  Sender: TAKEDA
  Company Number: US-TAKEDA-US201721679

PATIENT
  Sex: Female
  Weight: 53 kg

DRUGS (34)
  1. HUMAN IMMUNOGLOBULIN G [Suspect]
     Active Substance: HUMAN IMMUNOGLOBULIN G
     Indication: Immunodeficiency
     Dosage: 16 GRAM, Q2WEEKS
     Dates: start: 20170807
  2. HUMAN IMMUNOGLOBULIN G [Suspect]
     Active Substance: HUMAN IMMUNOGLOBULIN G
     Indication: Immunodeficiency common variable
  3. GAMMAGARD LIQUID [Suspect]
     Active Substance: HUMAN IMMUNOGLOBULIN G
     Indication: Immunodeficiency
     Dosage: 30 GRAM, Q2WEEKS
     Dates: start: 20210730
  4. GAMMAGARD LIQUID [Suspect]
     Active Substance: HUMAN IMMUNOGLOBULIN G
     Indication: Immunodeficiency common variable
  5. PHENAZOPYRIDINE [Suspect]
     Active Substance: PHENAZOPYRIDINE
     Indication: Product used for unknown indication
  6. ACETAMINOPHEN [Concomitant]
     Active Substance: ACETAMINOPHEN
  7. EPINEPHRINE [Concomitant]
     Active Substance: EPINEPHRINE
  8. VITAMIN D [Concomitant]
     Active Substance: VITAMIN D NOS
  9. BUSPIRONE HCL [Concomitant]
     Active Substance: BUSPIRONE HYDROCHLORIDE
  10. FUROSEMIDE [Concomitant]
     Active Substance: FUROSEMIDE
  11. TOPIRAMATE [Concomitant]
     Active Substance: TOPIRAMATE
  12. VITAMIN C [Concomitant]
     Active Substance: ASCORBIC ACID
  13. Hair skin nails [Concomitant]
  14. FOLIC ACID [Concomitant]
     Active Substance: FOLIC ACID
  15. SODIUM CHLORIDE [Concomitant]
     Active Substance: SODIUM CHLORIDE
  16. SUCRALFATE [Concomitant]
     Active Substance: SUCRALFATE
  17. BUPROPION [Concomitant]
     Active Substance: BUPROPION
  18. LIDOCAINE [Concomitant]
     Active Substance: LIDOCAINE
  19. METHOTREXATE [Concomitant]
     Active Substance: METHOTREXATE
  20. METFORMIN HYDROCHLORIDE [Concomitant]
     Active Substance: METFORMIN HYDROCHLORIDE
  21. DIPHENHYDRAMINE HYDROCHLORIDE [Concomitant]
     Active Substance: DIPHENHYDRAMINE HYDROCHLORIDE
  22. OMEPRAZOLE [Concomitant]
     Active Substance: OMEPRAZOLE
  23. LYRICA [Concomitant]
     Active Substance: PREGABALIN
  24. SODIUM CHLORIDE [Concomitant]
     Active Substance: SODIUM CHLORIDE
  25. OXYCODONE AND ACETAMINOPHEN [Concomitant]
     Active Substance: ACETAMINOPHEN\OXYCODONE HYDROCHLORIDE
  26. FORTEO [Concomitant]
     Active Substance: TERIPARATIDE
  27. BUSPIRONE [Concomitant]
     Active Substance: BUSPIRONE HYDROCHLORIDE
  28. HUMIRA [Concomitant]
     Active Substance: ADALIMUMAB
  29. NYSTATIN [Concomitant]
     Active Substance: NYSTATIN
  30. ORENCIA [Concomitant]
     Active Substance: ABATACEPT
  31. OZEMPIC [Concomitant]
     Active Substance: SEMAGLUTIDE
  32. CYMBALTA [Concomitant]
     Active Substance: DULOXETINE HYDROCHLORIDE
  33. SYNTHROID [Concomitant]
     Active Substance: LEVOTHYROXINE SODIUM
  34. DIPHENHYDRAMINE [Concomitant]
     Active Substance: DIPHENHYDRAMINE

REACTIONS (32)
  - Hypothyroidism [Unknown]
  - Autoimmune thyroiditis [Unknown]
  - Urinary tract infection [Unknown]
  - Oral herpes [Unknown]
  - Emotional distress [Unknown]
  - Drug hypersensitivity [Unknown]
  - Speech disorder [Unknown]
  - Eyelid ptosis [Unknown]
  - Crying [Unknown]
  - Candida infection [Unknown]
  - Weight decreased [Unknown]
  - Blood pressure decreased [Unknown]
  - Fall [Unknown]
  - Generalised oedema [Unknown]
  - Peripheral swelling [Unknown]
  - Hypervolaemia [Unknown]
  - Incorrect drug administration rate [Unknown]
  - Thermal burn [Unknown]
  - Respiratory tract infection [Unknown]
  - Apathy [Unknown]
  - Decreased appetite [Unknown]
  - Asthenia [Unknown]
  - Rash [Unknown]
  - Tremor [Unknown]
  - Pain [Unknown]
  - Hypotension [Unknown]
  - Back pain [Unknown]
  - Headache [Unknown]
  - Diarrhoea [Unknown]
  - Fatigue [Unknown]
  - Dizziness [Unknown]
  - Nausea [Unknown]
